APPROVED DRUG PRODUCT: PLAQUENIL
Active Ingredient: HYDROXYCHLOROQUINE SULFATE
Strength: 200MG
Dosage Form/Route: TABLET;ORAL
Application: N009768 | Product #001 | TE Code: AB
Applicant: ADVANZ PHARMA (US) CORP
Approved: Approved Prior to Jan 1, 1982 | RLD: Yes | RS: Yes | Type: RX